FAERS Safety Report 9900816 (Version 2)
Quarter: 2014Q1

REPORT INFORMATION
  Report Type: Spontaneous
  Country: VE (occurrence: VE)
  Receive Date: 20140217
  Receipt Date: 20140225
  Transmission Date: 20141002
  Serious: Yes (Death, Hospitalization)
  Sender: FDA-Public Use
  Company Number: VE-AMGEN-VENSP2014010728

PATIENT
  Age: 59 Year
  Sex: Male

DRUGS (2)
  1. VECTIBIX [Suspect]
     Indication: COLON CANCER METASTATIC
     Dosage: UNK
     Route: 042
  2. ALBUMINE [Concomitant]
     Dosage: UNK

REACTIONS (1)
  - Hepatorenal syndrome [Fatal]
